FAERS Safety Report 8103022-2 (Version None)
Quarter: 2012Q1

REPORT INFORMATION
  Report Type: 
  Country: None (occurrence: None)
  Receive Date: 20120201
  Receipt Date: 20120201
  Transmission Date: 20120608
  Serious: No
  Sender: FDA-Public Use
  Company Number: None

PATIENT
  Age: 35 Year
  Sex: Male
  Weight: 80.739 kg

DRUGS (1)
  1. CITALOPRAM HYDROBROMIDE [Suspect]
     Indication: DEPRESSION
     Dosage: 10 MG, 2 TABLETS
     Route: 048
     Dates: start: 20110124, end: 20120129

REACTIONS (4)
  - FEELING HOT [None]
  - ANGER [None]
  - PRODUCT SUBSTITUTION ISSUE [None]
  - IRRITABILITY [None]
